FAERS Safety Report 4409564-5 (Version None)
Quarter: 2004Q3

REPORT INFORMATION
  Report Type: 
  Country: None (occurrence: None)
  Receive Date: 20040726
  Receipt Date: 20040715
  Transmission Date: 20050211
  Serious: Yes (Hospitalization)
  Sender: FDA-Public Use
  Company Number: CPVL2004FRA5437

PATIENT
  Age: 48 Year
  Sex: Female

DRUGS (1)
  1. MIDODRINE (MIDODRINE) [Suspect]
     Indication: SYNCOPE
     Dosage: 15 MG (5MG, 3 IN 1D); UNK
     Route: 065

REACTIONS (1)
  - ILEUS [None]
